FAERS Safety Report 4288744-6 (Version None)
Quarter: 2004Q1

REPORT INFORMATION
  Report Type: 
  Country: None (occurrence: None)
  Receive Date: 20040205
  Receipt Date: 20040126
  Transmission Date: 20041129
  Serious: Yes (Other)
  Sender: FDA-Public Use
  Company Number: DE-JNJFOC-20040104835

PATIENT
  Sex: Female

DRUGS (1)
  1. ITRACONAZOLE [Suspect]
     Dosage: ORAL
     Route: 048

REACTIONS (3)
  - NAUSEA [None]
  - PARAESTHESIA [None]
  - VERTIGO [None]
